APPROVED DRUG PRODUCT: FENOPROFEN CALCIUM
Active Ingredient: FENOPROFEN CALCIUM
Strength: EQ 200MG BASE
Dosage Form/Route: CAPSULE;ORAL
Application: A215548 | Product #001
Applicant: MISEMER PHARMACEUTICALS INC
Approved: May 16, 2023 | RLD: No | RS: No | Type: DISCN